FAERS Safety Report 8745658 (Version 2)
Quarter: 2012Q4

REPORT INFORMATION
  Report Type: 
  Country: US (occurrence: US)
  Receive Date: 20120826
  Receipt Date: 20120920
  Transmission Date: 20130627
  Serious: No
  Sender: FDA-Public Use
  Company Number: US-B.I. PHARMACEUTICALS,INC./RIDGEFIELD-2012-BP-20214BP

PATIENT
  Age: 43 Year
  Sex: Female

DRUGS (15)
  1. SPIRIVA [Suspect]
     Indication: CHRONIC OBSTRUCTIVE PULMONARY DISEASE
     Dosage: 18 mcg
     Route: 055
     Dates: start: 2011
  2. FLOVENT [Concomitant]
     Indication: CHRONIC OBSTRUCTIVE PULMONARY DISEASE
     Dosage: 4 puf
     Route: 055
     Dates: start: 2008
  3. ALBUTEROL SULFATE [Concomitant]
     Indication: CHRONIC OBSTRUCTIVE PULMONARY DISEASE
     Dates: start: 2007
  4. SINGULAIR [Concomitant]
     Indication: CHRONIC OBSTRUCTIVE PULMONARY DISEASE
     Dosage: 10 mg
     Route: 048
     Dates: start: 2009
  5. SOMA [Concomitant]
     Indication: PAIN
     Dates: start: 2007
  6. HYDROCODONE [Concomitant]
     Indication: PAIN
     Route: 048
     Dates: start: 2010
  7. FLEXERIL [Concomitant]
     Indication: MUSCLE SPASMS
     Dosage: 40 mg
     Route: 048
     Dates: start: 2002
  8. MELOXICAM [Concomitant]
     Indication: PAIN
     Dosage: 15 mg
     Route: 048
     Dates: start: 201207
  9. RANITIDINE [Concomitant]
     Indication: GASTROOESOPHAGEAL REFLUX DISEASE
     Dosage: 150 mg
     Route: 048
     Dates: start: 2007
  10. PLAVIX [Concomitant]
     Indication: THROMBOSIS
     Dosage: 5 mg
     Route: 048
     Dates: start: 2008
  11. DETROL LA [Concomitant]
     Indication: BLADDER SPASM
     Dosage: 4 mg
     Route: 048
     Dates: start: 2006
  12. LASIX [Concomitant]
     Indication: OEDEMA PERIPHERAL
     Dosage: 40 mg
     Route: 048
     Dates: start: 2011
  13. MEDROXYPROGESTERONE [Concomitant]
     Indication: MENSTRUAL DISORDER
     Dosage: 10 mg
     Route: 048
     Dates: start: 2007
  14. PREDNISONE [Concomitant]
     Indication: CHRONIC OBSTRUCTIVE PULMONARY DISEASE
     Dosage: 5 mg
     Route: 048
     Dates: start: 201202
  15. CLOTRIMAZOLE AND BETAMETHASONE DIPROPIONATE [Concomitant]
     Indication: DRY SKIN
     Route: 061
     Dates: start: 2007

REACTIONS (2)
  - Sneezing [Recovered/Resolved]
  - Product quality issue [Unknown]
